FAERS Safety Report 4994977-3 (Version None)
Quarter: 2006Q2

REPORT INFORMATION
  Report Type: 
  Country: None (occurrence: None)
  Receive Date: 20060508
  Receipt Date: 20060426
  Transmission Date: 20061013
  Serious: Yes (Hospitalization)
  Sender: FDA-Public Use
  Company Number: FR-GILEAD-2006-0009517

PATIENT
  Age: 35 Year
  Sex: Male
  Weight: 63 kg

DRUGS (6)
  1. VIREAD [Suspect]
     Route: 048
     Dates: start: 20030416, end: 20050901
  2. VIDEX [Suspect]
     Route: 048
     Dates: start: 20030514, end: 20050629
  3. NORVIR [Concomitant]
     Route: 048
     Dates: start: 20030416
  4. SUSTIVA [Concomitant]
     Route: 048
     Dates: start: 20030616
  5. AGENERASE [Concomitant]
     Route: 048
     Dates: start: 20030416, end: 20041108
  6. TELZIR [Concomitant]
     Route: 048
     Dates: start: 20041108

REACTIONS (9)
  - ABDOMINAL PAIN UPPER [None]
  - BLOOD AMYLASE INCREASED [None]
  - CHOLELITHIASIS [None]
  - HYPERBILIRUBINAEMIA [None]
  - JAUNDICE [None]
  - LIPASE INCREASED [None]
  - PANCREATITIS ACUTE [None]
  - PANCREATITIS CHRONIC [None]
  - VOMITING [None]
